FAERS Safety Report 23859495 (Version 2)
Quarter: 2024Q2

REPORT INFORMATION
  Report Type: Spontaneous
  Country: US (occurrence: US)
  Receive Date: 20240515
  Receipt Date: 20240611
  Transmission Date: 20240715
  Serious: Yes (Other)
  Sender: FDA-Public Use
  Company Number: US-BRISTOL-MYERS SQUIBB COMPANY-2024-074112

PATIENT
  Age: 70 Year
  Sex: Female
  Weight: 66.22 kg

DRUGS (5)
  1. REVLIMID [Suspect]
     Active Substance: LENALIDOMIDE
     Indication: Plasma cell myeloma
     Dosage: ONCE DAILY FOR 21 DAYS THEN 7 DAYS OFF.
     Route: 048
  2. REVLIMID [Suspect]
     Active Substance: LENALIDOMIDE
     Indication: Back pain
  3. REVLIMID [Suspect]
     Active Substance: LENALIDOMIDE
     Indication: Stem cell transplant
  4. ELIQUIS [Concomitant]
     Active Substance: APIXABAN
     Indication: Thrombosis
  5. ELIQUIS [Concomitant]
     Active Substance: APIXABAN
     Dosage: FREQUENCY: TWICE DAILY FOR 7 DAYS
     Dates: start: 20240507

REACTIONS (1)
  - Thrombosis [Recovering/Resolving]

NARRATIVE: CASE EVENT DATE: 20240507
